FAERS Safety Report 7540379-5 (Version None)
Quarter: 2011Q2

REPORT INFORMATION
  Report Type: 
  Country: None (occurrence: None)
  Receive Date: 20110610
  Receipt Date: 20110606
  Transmission Date: 20111010
  Serious: Yes (Hospitalization)
  Sender: FDA-Public Use
  Company Number: GB-MERCK-1106GBR00027

PATIENT
  Age: 57 Year
  Sex: Male

DRUGS (11)
  1. NAFRONYL OXALATE [Concomitant]
     Route: 065
  2. ZOCOR [Suspect]
     Indication: HYPERCHOLESTEROLAEMIA
     Route: 048
     Dates: start: 20060724, end: 20110522
  3. RAMIPRIL [Concomitant]
     Route: 065
  4. TRIMETHOPRIM [Concomitant]
     Route: 065
  5. RANOLAZINE [Suspect]
     Indication: ANGINA PECTORIS
     Route: 048
     Dates: start: 20110506, end: 20110522
  6. AMLODIPINE [Concomitant]
     Route: 065
  7. NITROGLYCERIN [Concomitant]
     Route: 065
  8. RANOLAZINE [Suspect]
     Route: 048
     Dates: start: 20110407, end: 20110505
  9. ISOSORBIDE MONONITRATE [Concomitant]
     Route: 065
  10. ASPIRIN [Concomitant]
     Route: 065
  11. CARVEDILOL [Concomitant]
     Route: 065

REACTIONS (6)
  - RHABDOMYOLYSIS [None]
  - ARTHRALGIA [None]
  - MUSCULOSKELETAL PAIN [None]
  - CHROMATURIA [None]
  - VOMITING [None]
  - MALAISE [None]
